FAERS Safety Report 7308785-1 (Version None)
Quarter: 2011Q1

REPORT INFORMATION
  Report Type: 
  Country: None (occurrence: None)
  Receive Date: 20110223
  Receipt Date: 20110216
  Transmission Date: 20110831
  Serious: Yes (Death, Other)
  Sender: FDA-Public Use
  Company Number: US-BAXTER-2011BH003562

PATIENT
  Age: 67 Year
  Sex: Male

DRUGS (2)
  1. HEPARIN [Suspect]
     Indication: EMBOLIC STROKE
     Route: 065
  2. HEPARIN [Suspect]
     Indication: CORONARY ARTERY BYPASS
     Route: 065

REACTIONS (3)
  - HEPARIN-INDUCED THROMBOCYTOPENIA [None]
  - DEATH [None]
  - CEREBROVASCULAR ACCIDENT [None]
